FAERS Safety Report 10958611 (Version 2)
Quarter: 2015Q1

REPORT INFORMATION
  Report Type: Other
  Country: GB (occurrence: GB)
  Receive Date: 20150326
  Receipt Date: 20150331
  Transmission Date: 20150721
  Serious: Yes (Death)
  Sender: FDA-Public Use
  Company Number: GB-LEHIGH_VALLEY-USA-POI0580201500062

PATIENT
  Age: 52 Year
  Sex: Female

DRUGS (1)
  1. BRETHINE [Suspect]
     Active Substance: TERBUTALINE SULFATE
     Indication: ASTHMA
     Route: 058

REACTIONS (2)
  - Pneumonia [Fatal]
  - Acute myocardial infarction [Fatal]

NARRATIVE: CASE EVENT DATE: 201412
